FAERS Safety Report 6059079-6 (Version None)
Quarter: 2009Q1

REPORT INFORMATION
  Report Type: 
  Country: None (occurrence: None)
  Receive Date: 20090130
  Receipt Date: 20090123
  Transmission Date: 20090719
  Serious: Yes (Disabling)
  Sender: FDA-Public Use
  Company Number: B0556444A

PATIENT
  Age: 50 Year
  Sex: Female

DRUGS (1)
  1. CEFUROXIME [Suspect]
     Indication: COUGH
     Dosage: 500MG TWICE PER DAY
     Route: 048
     Dates: start: 20090119, end: 20090122

REACTIONS (1)
  - DEAFNESS [None]
